FAERS Safety Report 4855807-3 (Version None)
Quarter: 2005Q4

REPORT INFORMATION
  Report Type: 
  Country: None (occurrence: None)
  Receive Date: 20051215
  Receipt Date: 20051215
  Transmission Date: 20060501
  Serious: Yes (Life-Threatening, Other)
  Sender: FDA-Public Use
  Company Number: None

PATIENT
  Sex: Female
  Weight: 90.7194 kg

DRUGS (6)
  1. LYRICA [Suspect]
     Indication: POST PROCEDURAL COMPLICATION
     Dosage: 100 MILLIGRAMS 3 TIMES PER DAY PO
     Route: 048
     Dates: start: 20051031, end: 20051126
  2. LYRICA [Suspect]
     Indication: SCIATICA
     Dosage: 100 MILLIGRAMS 3 TIMES PER DAY PO
     Route: 048
     Dates: start: 20051031, end: 20051126
  3. EFFEXOR XR [Concomitant]
  4. AMBIEN [Concomitant]
  5. RESTASIS [Concomitant]
  6. PILOCARPINE [Concomitant]

REACTIONS (9)
  - ACTIVITIES OF DAILY LIVING IMPAIRED [None]
  - ANXIETY [None]
  - DIARRHOEA [None]
  - FEELING ABNORMAL [None]
  - FEELING COLD [None]
  - HEADACHE [None]
  - NAUSEA [None]
  - PANIC REACTION [None]
  - SUICIDAL IDEATION [None]
